FAERS Safety Report 8182286-3 (Version None)
Quarter: 2012Q1

REPORT INFORMATION
  Report Type: 
  Country: None (occurrence: None)
  Receive Date: 20120302
  Receipt Date: 20120227
  Transmission Date: 20120608
  Serious: Yes (Hospitalization)
  Sender: FDA-Public Use
  Company Number: PHHY2012KR017464

PATIENT
  Sex: Male

DRUGS (4)
  1. ZOVIRAX [Concomitant]
  2. TACROBELL [Concomitant]
  3. EXJADE [Suspect]
     Indication: ACUTE LYMPHOCYTIC LEUKAEMIA
  4. EXJADE [Suspect]
     Indication: IRON OVERLOAD
     Dosage: UNK UKN, UNK
     Route: 048
     Dates: start: 20110620

REACTIONS (2)
  - NASOPHARYNGITIS [None]
  - RENAL IMPAIRMENT [None]
